FAERS Safety Report 18977935 (Version 1)
Quarter: 2021Q1

REPORT INFORMATION
  Report Type: Report from Study
  Country: GR (occurrence: GR)
  Receive Date: 20210307
  Receipt Date: 20210307
  Transmission Date: 20210420
  Serious: Yes (Hospitalization, Other)
  Sender: FDA-Public Use
  Company Number: GR-TEVA-2021-GR-1886528

PATIENT
  Age: 81 Year
  Sex: Female

DRUGS (14)
  1. SALOSPIR [Concomitant]
     Active Substance: ASPIRIN
     Indication: CARDIOVASCULAR DISORDER
     Dosage: 100 MILLIGRAM DAILY; THERAPY START DATE : ASKED BUT UNKNOWN
  2. LECALCIF [Suspect]
     Active Substance: CHOLECALCIFEROL
     Indication: PRODUCT USED FOR UNKNOWN INDICATION
     Dosage: 1 DOSAGE FORM, 2/W , UNIT DOSE : 2 DF , THERAPY START DATE : ASKED BUT UNKNOWN
     Route: 065
     Dates: end: 20201212
  3. ACTOS [Concomitant]
     Active Substance: PIOGLITAZONE HYDROCHLORIDE
     Indication: DIABETES MELLITUS
     Dosage: 15 MILLIGRAM DAILY; THERAPY START DATE : ASKED BUT UNKNOWN
  4. XIGDUO XR [Concomitant]
     Active Substance: DAPAGLIFLOZIN PROPANEDIOL\METFORMIN HYDROCHLORIDE
     Indication: DIABETES MELLITUS
     Dosage: 2 DOSAGE FORMS DAILY; THERAPY START DATE : ASKED BUT UNKNOWN
  5. FEMARA [Concomitant]
     Active Substance: LETROZOLE
     Indication: BREAST CANCER
     Dosage: 2.5 MILLIGRAM DAILY; THERAPY START DATE : ASKED BUT UNKNOWN
  6. CALCITRIOL. [Suspect]
     Active Substance: CALCITRIOL
     Indication: PRODUCT USED FOR UNKNOWN INDICATION
     Dosage: 4 DOSAGE FORMS DAILY; THERAPY START DATE : ASKED BUT UNKNOWN
     Route: 065
     Dates: end: 20201212
  7. TERIPARATIDE [Suspect]
     Active Substance: TERIPARATIDE
     Indication: OSTEOPOROSIS
     Dosage: 20 MICROGRAM DAILY; PEN, DISPOSABLE , DOSAGE1: EXPDT=?OCT?2021
     Route: 058
     Dates: start: 20200808, end: 20210112
  8. NATECAL D3 [Suspect]
     Active Substance: CALCIUM CARBONATE\CHOLECALCIFEROL
     Indication: BONE PAIN
     Dosage: 1 DOSAGE FORMS DAILY; THERAPY START DATE : ASKED BUT UNKNOWN
     Route: 065
  9. MAGENLOM [Concomitant]
     Indication: GASTROINTESTINAL DISORDER PROPHYLAXIS
     Dosage: 40 MILLIGRAM DAILY; THERAPY START DATE : ASKED BUT UNKNOWN
  10. XULTOPHY 100/3.6 [Concomitant]
     Active Substance: INSULIN DEGLUDEC\LIRAGLUTIDE
     Indication: DIABETES MELLITUS
     Dosage: 14 INTERNATIONAL UNIT, UNKNOWN , THERAPY START DATE : ASKED BUT UNKNOWN
  11. T4 [Concomitant]
     Active Substance: LEVOTHYROXINE
     Indication: THYROID DISORDER
     Dosage: 1 DOSAGE FORM, 4/W (150 MG TABLET) , THERAPY START DATE : ASKED BUT UNKNOWN, UNIT DOSE : 4 DF
  12. T4 [Concomitant]
     Active Substance: LEVOTHYROXINE
     Dosage: 1 DOSAGE FORM, 3/W (137 MG TABLET)
  13. SEVIKAR [Concomitant]
     Active Substance: AMLODIPINE BESYLATE\OLMESARTAN MEDOXOMIL
     Indication: BLOOD PRESSURE ABNORMAL
     Dosage: 1 DOSAGE FORMS DAILY; THERAPY START DATE : ASKED BUT UNKNOWN
  14. ZIRCOS [Concomitant]
     Indication: BLOOD CHOLESTEROL ABNORMAL

REACTIONS (6)
  - Blood parathyroid hormone decreased [Unknown]
  - Blood calcium increased [Recovering/Resolving]
  - Gait disturbance [Unknown]
  - Mobility decreased [Unknown]
  - Blood calcium decreased [Unknown]
  - Blood glucose increased [Recovered/Resolved]

NARRATIVE: CASE EVENT DATE: 20201027
